FAERS Safety Report 4995078-0 (Version None)
Quarter: 2006Q2

REPORT INFORMATION
  Report Type: 
  Country: None (occurrence: None)
  Receive Date: 20060503
  Receipt Date: 20060419
  Transmission Date: 20061013
  Serious: Yes (Other)
  Sender: FDA-Public Use
  Company Number: 2006BH005974

PATIENT
  Age: 70 Year
  Sex: Male

DRUGS (4)
  1. BALANCED SALT SOLUTION [Suspect]
     Indication: CATARACT OPERATION
     Dosage: 500 ML
  2. BALANCED SALT SOLUTION [Suspect]
  3. BALANCED SALT SOLUTION [Suspect]
  4. KENALOG [Suspect]
     Indication: CATARACT OPERATION

REACTIONS (1)
  - ENDOPHTHALMITIS [None]
